FAERS Safety Report 20404985 (Version 1)
Quarter: 2022Q1

REPORT INFORMATION
  Report Type: Spontaneous
  Country: US (occurrence: None)
  Receive Date: 20220129
  Receipt Date: 20220129
  Transmission Date: 20220423
  Serious: Yes (Other)
  Sender: FDA-Public Use
  Company Number: None

PATIENT
  Age: 66 Year
  Sex: Male

DRUGS (5)
  1. NUPLAZID [Suspect]
     Active Substance: PIMAVANSERIN TARTRATE
     Indication: Hallucination
     Dosage: FREQUENCY : DAILY;?
     Route: 048
     Dates: start: 20211229, end: 20220103
  2. FINASTERIDE [Concomitant]
     Active Substance: FINASTERIDE
  3. AMANTADINE [Concomitant]
     Active Substance: AMANTADINE
  4. HYOSCYAMINE [Concomitant]
     Active Substance: HYOSCYAMINE
  5. CARBIDOPA\LEVODOPA [Concomitant]
     Active Substance: CARBIDOPA\LEVODOPA

REACTIONS (5)
  - Drooling [None]
  - Memory impairment [None]
  - Confusional state [None]
  - Abnormal behaviour [None]
  - Speech disorder [None]

NARRATIVE: CASE EVENT DATE: 20211229
